FAERS Safety Report 19805478 (Version 2)
Quarter: 2021Q3

REPORT INFORMATION
  Report Type: Spontaneous
  Country: GB (occurrence: GB)
  Receive Date: 20210909
  Receipt Date: 20210916
  Transmission Date: 20211014
  Serious: Yes (Hospitalization, Disabling, Other)
  Sender: FDA-Public Use
  Company Number: GB-ORGANON-O2109GBR000499

PATIENT
  Age: 44 Year
  Sex: Male
  Weight: 75 kg

DRUGS (8)
  1. EUMOVATE [Suspect]
     Active Substance: CLOBETASONE BUTYRATE
     Indication: ECZEMA
     Dosage: APPLIED TO SKIN AS REQUIRED
     Route: 061
     Dates: start: 19770901, end: 20180605
  2. ALPHADERM [Suspect]
     Active Substance: HYDROCORTISONE\UREA
     Indication: ECZEMA
     Dosage: APPLIED TO SKIN AS REQUIRED
     Route: 061
     Dates: start: 19770901, end: 20180605
  3. DUPIXENT [Concomitant]
     Active Substance: DUPILUMAB
     Dosage: UNK
  4. PREDNISOLONE. [Suspect]
     Active Substance: PREDNISOLONE
     Indication: ECZEMA
     Dosage: UNK
     Dates: start: 19770901, end: 20180605
  5. BETNOVATE [Suspect]
     Active Substance: BETAMETHASONE
     Indication: ECZEMA
     Dosage: APPLIED TO SKIN AS REQUIRED
     Route: 061
     Dates: start: 19770901, end: 20180605
  6. MOMETASONE FUROATE. [Suspect]
     Active Substance: MOMETASONE FUROATE
     Dosage: APPLIED TO SKIN AS REQUIRED
     Route: 061
     Dates: start: 19770901, end: 20180605
  7. CICLOSPORIN [Concomitant]
     Active Substance: CYCLOSPORINE
     Dosage: UNK
  8. FUCIDIN [FUSIDIC ACID] [Suspect]
     Active Substance: FUSIDIC ACID
     Indication: ECZEMA
     Dosage: APPLIED TO SKIN AS REQUIRED
     Route: 061
     Dates: start: 19770901, end: 20180605

REACTIONS (10)
  - Oedema [Recovered/Resolved with Sequelae]
  - Medication error [Unknown]
  - Pruritus [Recovered/Resolved with Sequelae]
  - Skin burning sensation [Recovered/Resolved with Sequelae]
  - Skin exfoliation [Recovered/Resolved with Sequelae]
  - Erythema [Recovered/Resolved with Sequelae]
  - Neuralgia [Recovered/Resolved with Sequelae]
  - Insomnia [Recovered/Resolved with Sequelae]
  - Skin weeping [Recovered/Resolved with Sequelae]
  - Temperature intolerance [Unknown]

NARRATIVE: CASE EVENT DATE: 20100101
